FAERS Safety Report 20897174 (Version 3)
Quarter: 2022Q2

REPORT INFORMATION
  Report Type: Spontaneous
  Country: CO (occurrence: CO)
  Receive Date: 20220531
  Receipt Date: 20220603
  Transmission Date: 20220721
  Serious: Yes (Other)
  Sender: FDA-Public Use
  Company Number: CO-PFIZER INC-202200770979

PATIENT
  Age: 75 Year
  Sex: Female

DRUGS (2)
  1. SUTENT [Suspect]
     Active Substance: SUNITINIB MALATE
     Indication: Renal cancer
     Dosage: 50 MG, TAKES THE MEDICINE FOR 14 DAYS, RESTS SOMETIMES SOMETIMES TWO WEEKS
     Route: 048
     Dates: start: 2016
  2. SUTENT [Suspect]
     Active Substance: SUNITINIB MALATE
     Indication: Metastasis

REACTIONS (12)
  - Bipolar disorder [Unknown]
  - Nodule [Unknown]
  - Neoplasm progression [Unknown]
  - Immune system disorder [Unknown]
  - Off label use [Unknown]
  - Feeling abnormal [Unknown]
  - Depressed mood [Unknown]
  - Decreased appetite [Unknown]
  - Anosmia [Unknown]
  - Taste disorder [Unknown]
  - Pain in extremity [Unknown]
  - Fall [Unknown]

NARRATIVE: CASE EVENT DATE: 20160101
